FAERS Safety Report 17510078 (Version 2)
Quarter: 2020Q3

REPORT INFORMATION
  Report Type: Spontaneous
  Country: US (occurrence: US)
  Receive Date: 20200306
  Receipt Date: 20200806
  Transmission Date: 20201102
  Serious: Yes (Hospitalization)
  Sender: FDA-Public Use
  Company Number: US-PFIZER INC-2020100685

PATIENT
  Age: 55 Year
  Sex: Female

DRUGS (1)
  1. XELJANZ XR [Suspect]
     Active Substance: TOFACITINIB CITRATE
     Indication: RHEUMATOID ARTHRITIS
     Dosage: 11 MG, 1X/DAY
     Route: 048
     Dates: start: 20191205

REACTIONS (7)
  - Headache [Unknown]
  - Influenza [Unknown]
  - Sinusitis [Unknown]
  - Weight decreased [Unknown]
  - Drug ineffective [Unknown]
  - Diarrhoea [Unknown]
  - Swelling [Unknown]
